FAERS Safety Report 23296251 (Version 1)
Quarter: 2023Q4

REPORT INFORMATION
  Report Type: Spontaneous
  Country: US (occurrence: US)
  Receive Date: 20231214
  Receipt Date: 20231214
  Transmission Date: 20240110
  Serious: No
  Sender: FDA-Public Use
  Company Number: US-GSK-US2023169680

PATIENT
  Age: 71 Year
  Sex: Female

DRUGS (3)
  1. BREO ELLIPTA [Suspect]
     Active Substance: FLUTICASONE FUROATE\VILANTEROL TRIFENATATE
     Indication: Asthma
     Dosage: UNK, 200/25 30 INHAL
  2. LEFLUNOMIDE [Suspect]
     Active Substance: LEFLUNOMIDE
     Indication: Rheumatoid arthritis
     Dosage: UNK UNK, QD, TOSSED, UNK
  3. MYCOPHENOLIC ACID [Suspect]
     Active Substance: MYCOPHENOLIC ACID
     Indication: Rheumatoid arthritis
     Dosage: 250 MG, BID

REACTIONS (4)
  - Gastrointestinal disorder [Unknown]
  - Diarrhoea [Unknown]
  - Blood glucose increased [Unknown]
  - Paraesthesia [Unknown]
